FAERS Safety Report 19844433 (Version 1)
Quarter: 2021Q3

REPORT INFORMATION
  Report Type: Spontaneous
  Country: US (occurrence: US)
  Receive Date: 20210916
  Receipt Date: 20210916
  Transmission Date: 20211014
  Serious: Yes (Death, Other)
  Sender: FDA-Public Use
  Company Number: NVSC2021US209176

PATIENT
  Age: 64 Year
  Sex: Male

DRUGS (4)
  1. RANITIDINE. [Suspect]
     Active Substance: RANITIDINE
     Indication: DYSPEPSIA
     Dosage: 150 MG, QW
     Route: 065
     Dates: end: 200306
  2. RANITIDINE. [Suspect]
     Active Substance: RANITIDINE
     Indication: ABDOMINAL DISCOMFORT
  3. RANITIDINE. [Suspect]
     Active Substance: RANITIDINE
     Indication: ABDOMINAL DISCOMFORT
  4. RANITIDINE. [Suspect]
     Active Substance: RANITIDINE
     Indication: DYSPEPSIA
     Dosage: 150 MG, QW
     Route: 065
     Dates: end: 200306

REACTIONS (9)
  - Incorrect dose administered [Unknown]
  - Small intestine carcinoma [Unknown]
  - Oesophageal carcinoma [Unknown]
  - Gastrointestinal carcinoma [Unknown]
  - Death [Fatal]
  - Inappropriate schedule of product administration [Unknown]
  - Colorectal cancer stage III [Unknown]
  - Gastric cancer stage III [Unknown]
  - Brain neoplasm malignant [Unknown]

NARRATIVE: CASE EVENT DATE: 20030401
